FAERS Safety Report 10239624 (Version 3)
Quarter: 2014Q2

REPORT INFORMATION
  Report Type: Spontaneous
  Country: CA (occurrence: CA)
  Receive Date: 20140616
  Receipt Date: 20140619
  Transmission Date: 20141212
  Serious: No
  Sender: FDA-Public Use
  Company Number: CA-ASTRAZENECA-2014SE39104

PATIENT
  Age: 63 Year
  Sex: Female

DRUGS (3)
  1. SYMBICORT TURBUHALER [Suspect]
     Route: 055
     Dates: start: 201405
  2. VENTOLIN [Concomitant]
     Route: 055
     Dates: start: 2008
  3. BP MED [Concomitant]
     Route: 048
     Dates: start: 2004

REACTIONS (2)
  - General symptom [Recovering/Resolving]
  - Cough [Recovering/Resolving]
